FAERS Safety Report 13457306 (Version 1)
Quarter: 2017Q2

REPORT INFORMATION
  Report Type: Spontaneous
  Country: US (occurrence: US)
  Receive Date: 20170418
  Receipt Date: 20170418
  Transmission Date: 20170830
  Serious: Yes (Hospitalization)
  Sender: FDA-Public Use
  Company Number: None

PATIENT
  Age: 74 Year
  Sex: Female
  Weight: 47.3 kg

DRUGS (4)
  1. ZOSYN [Suspect]
     Active Substance: PIPERACILLIN SODIUM\TAZOBACTAM SODIUM
     Indication: SOFT TISSUE NECROSIS
     Dosage: OTHER FREQUENCY:Q6H;?
     Route: 041
     Dates: start: 20170307, end: 20170307
  2. ZOSYN [Suspect]
     Active Substance: PIPERACILLIN SODIUM\TAZOBACTAM SODIUM
     Indication: DECUBITUS ULCER
     Dosage: OTHER FREQUENCY:Q6H;?
     Route: 041
     Dates: start: 20170307, end: 20170307
  3. VANCOMYCIN [Suspect]
     Active Substance: VANCOMYCIN
     Indication: SOFT TISSUE NECROSIS
     Route: 041
     Dates: start: 20170307, end: 20170311
  4. VANCOMYCIN [Suspect]
     Active Substance: VANCOMYCIN
     Indication: DECUBITUS ULCER
     Route: 041
     Dates: start: 20170307, end: 20170311

REACTIONS (2)
  - Rash [None]
  - Drug eruption [None]

NARRATIVE: CASE EVENT DATE: 20170311
